FAERS Safety Report 8602278-7 (Version None)
Quarter: 2012Q3

REPORT INFORMATION
  Report Type: 
  Country: None (occurrence: None)
  Receive Date: 20120423
  Receipt Date: 20090415
  Transmission Date: 20120928
  Serious: Yes (Other)
  Sender: FDA-Public Use
  Company Number: PHEH2009US03718

PATIENT
  Sex: Female

DRUGS (2)
  1. TRAMADOL HCL [Suspect]
  2. FEMARA [Suspect]

REACTIONS (5)
  - DECREASED APPETITE [None]
  - CRYING [None]
  - HOT FLUSH [None]
  - DEPRESSION [None]
  - SLEEP DISORDER [None]
